FAERS Safety Report 5776438-7 (Version None)
Quarter: 2008Q2

REPORT INFORMATION
  Report Type: 
  Country: None (occurrence: None)
  Receive Date: 20080617
  Receipt Date: 20080617
  Transmission Date: 20081010
  Serious: Yes (Death, Life-Threatening, Hospitalization, Disabling)
  Sender: FDA-Public Use
  Company Number: None

PATIENT
  Sex: Female
  Weight: 63.5036 kg

DRUGS (1)
  1. DIGOXIN [Suspect]
     Dosage: INITIAL DOSE - 1 3 DAYS (3 DAYS) TWICE BY MOUTH THEREAFTER 1 DAILY
     Route: 048
     Dates: start: 20080110, end: 20080314

REACTIONS (6)
  - CARDIOACTIVE DRUG LEVEL INCREASED [None]
  - MALAISE [None]
  - NAUSEA [None]
  - PAIN [None]
  - PARALYSIS [None]
  - REFUSAL OF TREATMENT BY RELATIVE [None]
